FAERS Safety Report 5135435-5 (Version None)
Quarter: 2006Q4

REPORT INFORMATION
  Report Type: 
  Country: None (occurrence: None)
  Receive Date: 20061026
  Receipt Date: 20061020
  Transmission Date: 20070319
  Serious: Yes (Other)
  Sender: FDA-Public Use
  Company Number: FR-GLAXOSMITHKLINE-B0443343A

PATIENT
  Age: 78 Year
  Sex: Female

DRUGS (3)
  1. AVANDIA [Suspect]
     Dosage: 4MG PER DAY
     Route: 048
  2. DEROXAT [Suspect]
     Dosage: 20MG PER DAY
     Route: 048
  3. DIAMICRON [Suspect]
     Dosage: 30MG PER DAY
     Route: 065

REACTIONS (4)
  - HYPERHIDROSIS [None]
  - HYPOGLYCAEMIA [None]
  - MALAISE [None]
  - NAUSEA [None]
